FAERS Safety Report 8473684-9 (Version None)
Quarter: 2012Q2

REPORT INFORMATION
  Report Type: 
  Country: None (occurrence: None)
  Receive Date: 20120628
  Receipt Date: 20110829
  Transmission Date: 20120825
  Serious: Yes (Hospitalization, Other)
  Sender: FDA-Public Use
  Company Number: US-MYLANLABS-2011S1017892

PATIENT
  Age: 60 Year
  Sex: Female

DRUGS (1)
  1. CLOZAPINE [Suspect]
     Dates: start: 20070101, end: 20110818

REACTIONS (1)
  - NEUROLEPTIC MALIGNANT SYNDROME [None]
